APPROVED DRUG PRODUCT: AMPHETAMINE SULFATE
Active Ingredient: AMPHETAMINE SULFATE
Strength: 10MG
Dosage Form/Route: TABLET;ORAL
Application: A213898 | Product #002
Applicant: DR REDDYS LABORATORIES SA
Approved: Jul 14, 2020 | RLD: No | RS: No | Type: DISCN